FAERS Safety Report 9118425 (Version 1)
Quarter: 2013Q1

REPORT INFORMATION
  Report Type: Spontaneous
  Country: US (occurrence: US)
  Receive Date: 20130219
  Receipt Date: 20130219
  Transmission Date: 20140127
  Serious: No
  Sender: FDA-Public Use
  Company Number: US-BRISTOL-MYERS SQUIBB COMPANY-17160748

PATIENT
  Age: 61 Year
  Sex: Female

DRUGS (9)
  1. ABATACEPT SUBQ INJECTION 125MG/ML [Suspect]
     Dosage: 1 DF: 125MG/1ML
     Route: 058
  2. PLAQUENIL [Concomitant]
     Dosage: TAB
  3. PRILOSEC [Concomitant]
     Dosage: CAP
  4. IBU [Concomitant]
     Dosage: TAB
  5. SULFASALAZINE [Concomitant]
     Dosage: TAB
  6. VITAMIN D [Concomitant]
     Dosage: CHW 400
  7. CALCIUM [Concomitant]
     Dosage: TAB
  8. ALLEGRA [Concomitant]
     Dosage: TAB
  9. HCTZ + TRIAMTERENE [Concomitant]
     Dosage: TAB 25-37.5

REACTIONS (1)
  - Dyspnoea [Unknown]
